FAERS Safety Report 24294319 (Version 5)
Quarter: 2024Q4

REPORT INFORMATION
  Report Type: Spontaneous
  Country: JP (occurrence: JP)
  Receive Date: 20240906
  Receipt Date: 20241115
  Transmission Date: 20250115
  Serious: Yes (Hospitalization, Other)
  Sender: ARGENX BVBA
  Company Number: JP-ARGENX-2024-ARGX-JP006422AA

PATIENT

DRUGS (23)
  1. EFGARTIGIMOD ALFA\HYALURONIDASE-QVFC [Suspect]
     Active Substance: EFGARTIGIMOD ALFA\HYALURONIDASE-QVFC
     Indication: Myasthenia gravis
     Dosage: 5.6 ML
     Route: 058
     Dates: start: 20240806, end: 20240822
  2. INSULIN NOS [Suspect]
     Active Substance: INSULIN NOS
     Indication: Diabetes mellitus
     Dosage: UNK
     Route: 058
  3. PREDNISOLONE [Concomitant]
     Active Substance: PREDNISOLONE
     Indication: Product used for unknown indication
     Dosage: 10 MG
     Route: 065
  4. CORTRIL [Concomitant]
     Active Substance: HYDROCORTISONE
     Indication: Product used for unknown indication
     Dosage: 30 MG
     Route: 065
  5. BONALON [Concomitant]
     Active Substance: ALENDRONATE SODIUM
     Indication: Product used for unknown indication
     Dosage: 35 MG
     Route: 065
  6. HUMALOG [Concomitant]
     Active Substance: INSULIN LISPRO
     Indication: Product used for unknown indication
     Dosage: UNK
     Route: 065
  7. OZEMPIC [Concomitant]
     Active Substance: SEMAGLUTIDE
     Indication: Product used for unknown indication
     Dosage: UNK
     Route: 065
  8. VONOPRAZAN FUMARATE [Concomitant]
     Active Substance: VONOPRAZAN FUMARATE
     Indication: Product used for unknown indication
     Dosage: 40 MG
     Route: 065
  9. EZETIMIBE [Concomitant]
     Active Substance: EZETIMIBE
     Indication: Product used for unknown indication
     Dosage: 10 MG
     Route: 065
  10. JARDIANCE [Concomitant]
     Active Substance: EMPAGLIFLOZIN
     Indication: Product used for unknown indication
     Dosage: 10 MG
     Route: 065
  11. LEVOTHYROXINE [Concomitant]
     Active Substance: LEVOTHYROXINE
     Indication: Product used for unknown indication
     Dosage: 50 MG
     Route: 065
  12. PROGRAF [Concomitant]
     Active Substance: TACROLIMUS
     Indication: Product used for unknown indication
     Dosage: 2 MG
     Route: 048
  13. MENOAID [Concomitant]
     Indication: Product used for unknown indication
     Dosage: UNK
     Route: 065
  14. LOXOPROFEN SODIUM [Concomitant]
     Active Substance: LOXOPROFEN SODIUM
     Indication: Product used for unknown indication
     Dosage: UNK
     Route: 065
  15. TRAMADOL [Concomitant]
     Active Substance: TRAMADOL
     Indication: Product used for unknown indication
     Dosage: UNK
     Route: 065
  16. NAPHAZOLINE NITRATE [Concomitant]
     Active Substance: NAPHAZOLINE NITRATE
     Indication: Eyelid ptosis
     Dosage: UNK
     Route: 047
  17. DIQUAFOSOL TETRASODIUM [Concomitant]
     Active Substance: DIQUAFOSOL TETRASODIUM
     Indication: Product used for unknown indication
     Dosage: UNK
     Route: 047
  18. HYALURONATE SODIUM [Concomitant]
     Active Substance: HYALURONATE SODIUM
     Indication: Product used for unknown indication
     Dosage: UNK
     Route: 047
  19. SODIUM GUALENATE MONOHYDRATE [Concomitant]
     Active Substance: SODIUM GUALENATE MONOHYDRATE
     Indication: Product used for unknown indication
     Dosage: UNK
     Route: 065
  20. SALIVEHT [Concomitant]
     Indication: Product used for unknown indication
     Dosage: UNK
     Route: 065
  21. HERBESSER [Concomitant]
     Active Substance: DILTIAZEM HYDROCHLORIDE
     Indication: Product used for unknown indication
     Dosage: 200 MG
     Route: 048
  22. AZILSARTAN KAMEDOXOMIL [Concomitant]
     Active Substance: AZILSARTAN KAMEDOXOMIL
     Indication: Product used for unknown indication
     Dosage: 20 MG
     Route: 065
  23. NITROGLYCERIN [Concomitant]
     Active Substance: NITROGLYCERIN
     Indication: Product used for unknown indication
     Dosage: ICTAL
     Route: 065

REACTIONS (16)
  - Acute generalised exanthematous pustulosis [Not Recovered/Not Resolved]
  - Adrenal insufficiency [Unknown]
  - Pituitary tumour [Unknown]
  - Diabetes insipidus [Unknown]
  - Arrhythmia [Unknown]
  - Application site purpura [Unknown]
  - Inflammation [Unknown]
  - Diplopia [Unknown]
  - Dysphagia [Unknown]
  - Hypoglycaemia [Unknown]
  - Symptom recurrence [Not Recovered/Not Resolved]
  - Dysstasia [Unknown]
  - Gait inability [Unknown]
  - Dysphagia [Unknown]
  - Drug eruption [Unknown]
  - Staphylococcal infection [Unknown]

NARRATIVE: CASE EVENT DATE: 20240822
